FAERS Safety Report 4603282-6 (Version None)
Quarter: 2005Q2

REPORT INFORMATION
  Report Type: 
  Country: None (occurrence: None)
  Receive Date: 20050223
  Receipt Date: 20040217
  Transmission Date: 20051028
  Serious: Yes (Other)
  Sender: FDA-Public Use
  Company Number: PHEH2003US11586

PATIENT
  Age: 75 Year
  Sex: Male
  Weight: 62.6 kg

DRUGS (1)
  1. DIOVAN [Suspect]
     Dosage: ORAL
     Route: 048
     Dates: start: 20031207, end: 20031217

REACTIONS (2)
  - OEDEMA PERIPHERAL [None]
  - SCROTAL SWELLING [None]
